FAERS Safety Report 8602774-2 (Version None)
Quarter: 2012Q3

REPORT INFORMATION
  Report Type: 
  Country: None (occurrence: None)
  Receive Date: 20120817
  Receipt Date: 20120808
  Transmission Date: 20120928
  Serious: Yes (Other)
  Sender: FDA-Public Use
  Company Number: CA-JNJFOC-20120804749

PATIENT
  Sex: Male
  Weight: 136 kg

DRUGS (14)
  1. SCOPOLAMINE [Concomitant]
     Route: 065
  2. ENTOCORT EC [Concomitant]
     Route: 065
  3. OXYCODONE HCL AND ACETAMINOPHEN [Concomitant]
     Dosage: 3-4 TABLETS AS PER NECESSARY
     Route: 065
  4. METHOTREXATE [Concomitant]
     Route: 065
  5. VITAMIN B-12 [Concomitant]
     Route: 065
  6. TAMSULOSIN HCL [Concomitant]
     Route: 065
  7. ALPRAZOLAM [Concomitant]
     Route: 065
  8. CHOLESTYRAMINE [Concomitant]
     Dosage: 1/2 PKG DAILY
     Route: 065
  9. COZAAR [Concomitant]
     Route: 065
  10. ETHACRYNIC ACID [Concomitant]
     Route: 065
  11. REMICADE [Suspect]
     Indication: CROHN'S DISEASE
     Route: 042
     Dates: start: 20101105
  12. FERROUS GLUCONATE [Concomitant]
     Route: 065
  13. LOPERAMIDE [Concomitant]
     Route: 065
  14. TERAZOSIN HYDROCHLORIDE [Concomitant]
     Route: 065

REACTIONS (1)
  - VASCULAR RUPTURE [None]
